FAERS Safety Report 24541041 (Version 1)
Quarter: 2024Q4

REPORT INFORMATION
  Report Type: Spontaneous
  Country: US (occurrence: None)
  Receive Date: 20241023
  Receipt Date: 20241023
  Transmission Date: 20250115
  Serious: No
  Sender: Public
  Company Number: None

PATIENT

DRUGS (2)
  1. GRANISETRON HYDROCHLORIDE [Suspect]
     Active Substance: GRANISETRON HYDROCHLORIDE
     Route: 047
  2. ATROPINE SULFATE [Suspect]
     Active Substance: ATROPINE SULFATE
     Route: 047

REACTIONS (2)
  - Product packaging confusion [None]
  - Product dispensing error [None]
